FAERS Safety Report 4984301-4 (Version None)
Quarter: 2006Q2

REPORT INFORMATION
  Report Type: 
  Country: None (occurrence: None)
  Receive Date: 20060420
  Receipt Date: 20060321
  Transmission Date: 20061013
  Serious: Yes (Hospitalization)
  Sender: FDA-Public Use
  Company Number: GXKR2005IT01677

PATIENT
  Age: 90 Year
  Sex: Female

DRUGS (5)
  1. AMIODARONE HCL [Suspect]
     Indication: ARRHYTHMIA
     Dosage: 200 MG, ORAL
     Route: 048
     Dates: start: 20041030, end: 20050524
  2. RAMIPRIL [Suspect]
     Dosage: 1,25 MG, ORAL
     Route: 048
     Dates: start: 20041030, end: 20050501
  3. NORVASC [Concomitant]
  4. SPIROFUR (FUROSEMIDE, SPIRONOLACTONE) [Suspect]
     Dosage: 1 IU IN MILLION, QOD, ORAL
     Route: 048
     Dates: start: 20040418, end: 20050314
  5. ASCRPTIN (ACETYLSALICYLIC ACID, ALUMINIUM HYDROXIDE, MAGNESIUM HYDROXI [Suspect]

REACTIONS (14)
  - AORTIC VALVE INCOMPETENCE [None]
  - AORTIC VALVE SCLEROSIS [None]
  - ASTHENIA [None]
  - ATRIAL FLUTTER [None]
  - ATRIOVENTRICULAR BLOCK [None]
  - BALANCE DISORDER [None]
  - BLOOD CREATININE INCREASED [None]
  - BLOOD POTASSIUM INCREASED [None]
  - HYPERTENSION [None]
  - HYPOTHYROIDISM [None]
  - MITRAL VALVE INCOMPETENCE [None]
  - POSTURE ABNORMAL [None]
  - SUPRAVENTRICULAR TACHYCARDIA [None]
  - TREMOR [None]
